FAERS Safety Report 22610084 (Version 2)
Quarter: 2023Q2

REPORT INFORMATION
  Report Type: Spontaneous
  Country: GB (occurrence: GB)
  Receive Date: 20230616
  Receipt Date: 20230623
  Transmission Date: 20230722
  Serious: Yes (Hospitalization)
  Sender: FDA-Public Use
  Company Number: GB-ACRAF SpA-2023-031125

PATIENT
  Age: 44 Year
  Sex: Female

DRUGS (12)
  1. PHENYTOIN SODIUM [Interacting]
     Active Substance: PHENYTOIN SODIUM
     Indication: Frontal lobe epilepsy
     Dosage: UNK
     Dates: end: 202210
  2. PHENYTOIN SODIUM [Interacting]
     Active Substance: PHENYTOIN SODIUM
     Dosage: 300 MG
     Dates: start: 202303
  3. PHENYTOIN SODIUM [Interacting]
     Active Substance: PHENYTOIN SODIUM
     Dosage: 200 MG
     Dates: start: 20230406
  4. PHENYTOIN SODIUM [Interacting]
     Active Substance: PHENYTOIN SODIUM
     Dosage: 100 MG
     Dates: start: 20230413, end: 20230428
  5. CENOBAMATE [Interacting]
     Active Substance: CENOBAMATE
     Indication: Frontal lobe epilepsy
     Dosage: UNK
     Route: 048
     Dates: start: 20220926
  6. CENOBAMATE [Interacting]
     Active Substance: CENOBAMATE
     Dosage: 250 MG
  7. CENOBAMATE [Interacting]
     Active Substance: CENOBAMATE
     Dosage: 200 MG
     Route: 048
     Dates: start: 202302
  8. CLOBAZAM [Concomitant]
     Active Substance: CLOBAZAM
  9. KEPPRA [Concomitant]
     Active Substance: LEVETIRACETAM
     Dosage: 1500 MG, 2X/DAY
  10. LAMOTRIGINE [Concomitant]
     Active Substance: LAMOTRIGINE
     Dates: start: 202303
  11. VALPROATE [Concomitant]
     Active Substance: VALPROIC ACID
     Dates: start: 202303
  12. PERAMPANEL [Concomitant]
     Active Substance: PERAMPANEL

REACTIONS (4)
  - Anticonvulsant drug level increased [Recovered/Resolved]
  - Drug interaction [Recovered/Resolved]
  - Ataxia [Recovered/Resolved]
  - Dizziness [Recovered/Resolved]

NARRATIVE: CASE EVENT DATE: 20230406
